FAERS Safety Report 6050063-5 (Version None)
Quarter: 2009Q1

REPORT INFORMATION
  Report Type: 
  Country: None (occurrence: None)
  Receive Date: 20090121
  Receipt Date: 20090108
  Transmission Date: 20090719
  Serious: Yes (Other)
  Sender: FDA-Public Use
  Company Number: DSA_81678_2006

PATIENT
  Age: 61 Year
  Sex: Female
  Weight: 56.6996 kg

DRUGS (50)
  1. XYREM [Suspect]
     Indication: FIBROMYALGIA
     Dosage: SEE IMAGE
     Route: 048
     Dates: start: 20060310, end: 20060323
  2. XYREM [Suspect]
     Indication: POOR QUALITY SLEEP
     Dosage: SEE IMAGE
     Route: 048
     Dates: start: 20060310, end: 20060323
  3. XYREM [Suspect]
     Indication: FIBROMYALGIA
     Dosage: SEE IMAGE
     Route: 048
     Dates: start: 20060324, end: 20060325
  4. XYREM [Suspect]
     Indication: POOR QUALITY SLEEP
     Dosage: SEE IMAGE
     Route: 048
     Dates: start: 20060324, end: 20060325
  5. XYREM [Suspect]
     Indication: FIBROMYALGIA
     Dosage: SEE IMAGE
     Route: 048
     Dates: start: 20060326, end: 20060401
  6. XYREM [Suspect]
     Indication: POOR QUALITY SLEEP
     Dosage: SEE IMAGE
     Route: 048
     Dates: start: 20060326, end: 20060401
  7. XYREM [Suspect]
     Indication: FIBROMYALGIA
     Dosage: SEE IMAGE
     Route: 048
     Dates: start: 20060401, end: 20060501
  8. XYREM [Suspect]
     Indication: POOR QUALITY SLEEP
     Dosage: SEE IMAGE
     Route: 048
     Dates: start: 20060401, end: 20060501
  9. XYREM [Suspect]
     Indication: FIBROMYALGIA
     Dosage: SEE IMAGE
     Route: 048
     Dates: start: 20060526, end: 20060729
  10. XYREM [Suspect]
     Indication: POOR QUALITY SLEEP
     Dosage: SEE IMAGE
     Route: 048
     Dates: start: 20060526, end: 20060729
  11. XYREM [Suspect]
     Indication: FIBROMYALGIA
     Dosage: SEE IMAGE
     Route: 048
     Dates: start: 20060730, end: 20060730
  12. XYREM [Suspect]
     Indication: POOR QUALITY SLEEP
     Dosage: SEE IMAGE
     Route: 048
     Dates: start: 20060730, end: 20060730
  13. XYREM [Suspect]
     Indication: FIBROMYALGIA
     Dosage: SEE IMAGE
     Route: 048
     Dates: start: 20060731, end: 20060815
  14. XYREM [Suspect]
     Indication: POOR QUALITY SLEEP
     Dosage: SEE IMAGE
     Route: 048
     Dates: start: 20060731, end: 20060815
  15. XYREM [Suspect]
     Indication: FIBROMYALGIA
     Dosage: SEE IMAGE
     Route: 048
     Dates: start: 20060816, end: 20060822
  16. XYREM [Suspect]
     Indication: POOR QUALITY SLEEP
     Dosage: SEE IMAGE
     Route: 048
     Dates: start: 20060816, end: 20060822
  17. XYREM [Suspect]
     Indication: FIBROMYALGIA
     Dosage: SEE IMAGE
     Route: 048
     Dates: start: 20080617, end: 20080804
  18. XYREM [Suspect]
     Indication: POOR QUALITY SLEEP
     Dosage: SEE IMAGE
     Route: 048
     Dates: start: 20080617, end: 20080804
  19. XYREM [Suspect]
     Indication: FIBROMYALGIA
     Dosage: SEE IMAGE
     Route: 048
     Dates: start: 20060823
  20. XYREM [Suspect]
     Indication: POOR QUALITY SLEEP
     Dosage: SEE IMAGE
     Route: 048
     Dates: start: 20060823
  21. XYREM [Suspect]
     Indication: FIBROMYALGIA
     Dosage: SEE IMAGE
     Route: 048
     Dates: start: 20081107
  22. XYREM [Suspect]
     Indication: POOR QUALITY SLEEP
     Dosage: SEE IMAGE
     Route: 048
     Dates: start: 20081107
  23. VITAMIN B-12 [Suspect]
     Indication: VITAMIN B12 DECREASED
     Dates: start: 20081224, end: 20090102
  24. RIZATRIPTAN BENZOATE [Concomitant]
  25. ESCITALOPRAM OXALATE [Concomitant]
  26. TRAZODONE HCL [Concomitant]
  27. METHADONE HCL [Concomitant]
  28. OMEPRAZOLE [Concomitant]
  29. DIAZEPAM [Concomitant]
  30. FENTANYL CITRATE [Suspect]
  31. DULOXETINE HYDROCHLORIDE [Suspect]
  32. MORPHINE SULFATE [Suspect]
  33. CLONIDINE HCL [Concomitant]
  34. LEVOTHYROXINE SODIUM [Concomitant]
  35. RALOXIFENE HYDROCHLORIDE [Concomitant]
  36. NEURONTIN [Concomitant]
  37. PHENAZOPYRIDINE HCL TAB [Concomitant]
  38. BACLOFEN [Concomitant]
  39. BIEFT SALVE [Concomitant]
  40. METHYLCELLULOSE [Concomitant]
  41. RAMELETON [Suspect]
  42. COLCHICINE [Suspect]
  43. RISENDRONATE SODIUM [Suspect]
  44. MAGNESIUM HYDROXIDE TAB [Concomitant]
  45. PILOCARPINE [Concomitant]
  46. CURAMIN [Concomitant]
  47. VITAMINS [Concomitant]
  48. MINERAL TAB [Suspect]
  49. CALCITONIN [Concomitant]
  50. PROMETRIUM [Concomitant]

REACTIONS (13)
  - CONDITION AGGRAVATED [None]
  - CONFUSIONAL STATE [None]
  - FALL [None]
  - GASTROOESOPHAGEAL REFLUX DISEASE [None]
  - HIATUS HERNIA [None]
  - NIGHTMARE [None]
  - PAIN [None]
  - PARANOIA [None]
  - PSYCHOTIC DISORDER [None]
  - TENSION [None]
  - TREMOR [None]
  - VITAMIN B12 DECREASED [None]
  - VOMITING [None]
